FAERS Safety Report 5608784-1 (Version None)
Quarter: 2008Q1

REPORT INFORMATION
  Report Type: 
  Country: None (occurrence: None)
  Receive Date: 20080131
  Receipt Date: 20080124
  Transmission Date: 20080703
  Serious: Yes (Other)
  Sender: FDA-Public Use
  Company Number: US-JNJFOC-20080106546

PATIENT

DRUGS (1)
  1. REMICADE [Suspect]
     Indication: IRRITABLE BOWEL SYNDROME

REACTIONS (3)
  - ANEURYSMAL BONE CYST [None]
  - BONE GRAFT [None]
  - IMPAIRED HEALING [None]
